FAERS Safety Report 15286997 (Version 1)
Quarter: 2018Q3

REPORT INFORMATION
  Report Type: Spontaneous
  Country: US (occurrence: US)
  Receive Date: 20180817
  Receipt Date: 20180817
  Transmission Date: 20181010
  Serious: No
  Sender: FDA-Public Use
  Company Number: US-JNJFOC-20180722473

PATIENT
  Sex: Male
  Weight: 73.48 kg

DRUGS (1)
  1. TYLENOL EXTRA STRENGTH [Suspect]
     Active Substance: ACETAMINOPHEN
     Indication: MYALGIA
     Dosage: EVERY 6 HOURS
     Route: 048
     Dates: start: 20180716, end: 20180716

REACTIONS (2)
  - Off label use [Unknown]
  - Incorrect dose administered [Unknown]
